FAERS Safety Report 6959020-5 (Version None)
Quarter: 2010Q3

REPORT INFORMATION
  Report Type: 
  Country: None (occurrence: None)
  Receive Date: 20100831
  Receipt Date: 20100819
  Transmission Date: 20110219
  Serious: Yes (Other)
  Sender: FDA-Public Use
  Company Number: US-PFIZER INC-2010104965

PATIENT
  Sex: Female
  Weight: 55.78 kg

DRUGS (2)
  1. LYRICA [Suspect]
     Indication: NEURALGIA
     Dosage: 300 MG, 2X/DAY
     Route: 048
     Dates: start: 20100101
  2. OXYCODONE [Concomitant]
     Indication: NEURALGIA
     Dosage: 60 MG, 2X/DAY

REACTIONS (8)
  - AMNESIA [None]
  - ANXIETY [None]
  - CONVULSION [None]
  - DEPRESSION [None]
  - DISTURBANCE IN ATTENTION [None]
  - DIZZINESS [None]
  - OEDEMA PERIPHERAL [None]
  - WEIGHT INCREASED [None]
